FAERS Safety Report 7436752-6 (Version None)
Quarter: 2011Q2

REPORT INFORMATION
  Report Type: 
  Country: None (occurrence: None)
  Receive Date: 20110426
  Receipt Date: 20110414
  Transmission Date: 20111010
  Serious: Yes (Hospitalization)
  Sender: FDA-Public Use
  Company Number: US-AMGEN-USACT2011020051

PATIENT
  Age: 50 Year
  Sex: Male
  Weight: 70 kg

DRUGS (8)
  1. SENOKOT [Concomitant]
     Dosage: UNK UNK, BID
  2. ROMIPLOSTIM [Suspect]
     Indication: NON-HODGKIN'S LYMPHOMA
     Dosage: 5 A?G/KG, UNK
     Route: 058
     Dates: start: 20110326
  3. RESTASIS [Concomitant]
     Dosage: UNK UNK, BID
     Route: 047
  4. ZOFRAN [Concomitant]
     Dosage: 8 MG, PRN
  5. VALTREX [Concomitant]
     Dosage: 500 MG, PRN
     Route: 048
  6. NEXIUM [Concomitant]
     Dosage: 40 MG, QD
     Route: 048
  7. CAPHOSOL [Concomitant]
  8. TRAMADOL HCL [Concomitant]
     Dosage: 50 MG, PRN

REACTIONS (1)
  - DEEP VEIN THROMBOSIS [None]
